FAERS Safety Report 5330629-8 (Version None)
Quarter: 2007Q2

REPORT INFORMATION
  Report Type: 
  Country: None (occurrence: None)
  Receive Date: 20070516
  Receipt Date: 20070504
  Transmission Date: 20071010
  Serious: Yes (Death)
  Sender: FDA-Public Use
  Company Number: 2007-01347

PATIENT
  Sex: 0

DRUGS (1)
  1. VELCADE [Suspect]
     Indication: MULTIPLE MYELOMA

REACTIONS (3)
  - DISEASE PROGRESSION [None]
  - MULTIPLE MYELOMA [None]
  - NO THERAPEUTIC RESPONSE [None]
